FAERS Safety Report 8586096-4 (Version None)
Quarter: 2012Q3

REPORT INFORMATION
  Report Type: 
  Country: None (occurrence: None)
  Receive Date: 20120810
  Receipt Date: 20120801
  Transmission Date: 20120928
  Serious: Yes (Other)
  Sender: FDA-Public Use
  Company Number: US-ASTRAZENECA-2010SE54168

PATIENT
  Age: 70 Year
  Sex: Female

DRUGS (1)
  1. NEXIUM [Suspect]
     Route: 048

REACTIONS (7)
  - ABASIA [None]
  - DYSPEPSIA [None]
  - COMPLEX REGIONAL PAIN SYNDROME [None]
  - FEELING ABNORMAL [None]
  - DRUG DOSE OMISSION [None]
  - COUGH [None]
  - MALAISE [None]
